FAERS Safety Report 7521637-7 (Version None)
Quarter: 2011Q2

REPORT INFORMATION
  Report Type: 
  Country: None (occurrence: None)
  Receive Date: 20110524
  Receipt Date: 20110506
  Transmission Date: 20111010
  Serious: Yes (Hospitalization, Other)
  Sender: FDA-Public Use
  Company Number: FK201100906

PATIENT
  Age: 50 Year
  Sex: Female

DRUGS (2)
  1. DEXAMETHASONE SODIUM PHOSPHATE [Suspect]
     Indication: PAIN
     Dosage: 10 MG, ONCE, EPIDURAL
     Route: 008
     Dates: start: 20110428, end: 20110428
  2. OMIPAQUE (IOHEXOL) [Concomitant]

REACTIONS (6)
  - FEELING ABNORMAL [None]
  - MENTAL STATUS CHANGES [None]
  - NECK PAIN [None]
  - BURNING SENSATION [None]
  - HEADACHE [None]
  - HYPOTENSION [None]
